FAERS Safety Report 25552817 (Version 1)
Quarter: 2025Q3

REPORT INFORMATION
  Report Type: Spontaneous
  Country: US (occurrence: US)
  Receive Date: 20250715
  Receipt Date: 20250715
  Transmission Date: 20251021
  Serious: Yes (Hospitalization, Other)
  Sender: HIKMA
  Company Number: US-HIKMA PHARMACEUTICALS USA INC.-US-H14001-25-08396

PATIENT
  Age: 30 Year
  Sex: Female

DRUGS (14)
  1. AMIKACIN [Suspect]
     Active Substance: AMIKACIN
     Indication: Mycobacterium avium complex infection
     Route: 042
     Dates: start: 20230306
  2. AZITHROMYCIN [Suspect]
     Active Substance: AZITHROMYCIN
     Indication: Mycobacterium avium complex infection
     Dosage: 500 MILLIGRAM, QD
     Route: 065
     Dates: start: 2022, end: 2023
  3. CEFTAROLINE [Suspect]
     Active Substance: CEFTAROLINE
     Indication: Mycobacterium avium complex infection
     Route: 042
  4. CLOFAZIMINE [Suspect]
     Active Substance: CLOFAZIMINE
     Indication: Mycobacterium avium complex infection
     Dosage: 100 MILLIGRAM, QD
     Route: 065
     Dates: start: 202306
  5. CLOFAZIMINE [Suspect]
     Active Substance: CLOFAZIMINE
     Route: 065
     Dates: start: 202404
  6. ETHAMBUTOL [Suspect]
     Active Substance: ETHAMBUTOL HYDROCHLORIDE
     Indication: Mycobacterium avium complex infection
     Dosage: UNK, FOR THREE MONTHS
     Route: 065
     Dates: start: 2022, end: 2023
  7. HYDROXYCHLOROQUINE [Suspect]
     Active Substance: HYDROXYCHLOROQUINE
     Indication: Product used for unknown indication
     Route: 042
  8. LINEZOLID [Suspect]
     Active Substance: LINEZOLID
     Indication: Mycobacterium avium complex infection
     Dosage: 300 MILLIGRAM, QD
     Route: 065
  9. MEROPENEM [Suspect]
     Active Substance: MEROPENEM
     Indication: Mycobacterium avium complex infection
     Route: 042
  10. MOXIFLOXACIN [Suspect]
     Active Substance: MOXIFLOXACIN
     Indication: Mycobacterium avium complex infection
     Route: 065
     Dates: end: 202311
  11. OMADACYCLINE [Suspect]
     Active Substance: OMADACYCLINE
     Indication: Mycobacterium avium complex infection
     Dosage: 300 MILLIGRAM, QD
     Route: 065
  12. PREDNISONE [Suspect]
     Active Substance: PREDNISONE
     Indication: Product used for unknown indication
     Route: 065
  13. PYRIDOXINE [Suspect]
     Active Substance: PYRIDOXINE
     Indication: Mycobacterium avium complex infection
     Route: 065
  14. RIFABUTIN [Suspect]
     Active Substance: RIFABUTIN
     Indication: Mycobacterium avium complex infection
     Dosage: 300 MILLIGRAM, QD
     Route: 065
     Dates: start: 2022, end: 2023

REACTIONS (14)
  - Mycobacterium avium complex infection [Unknown]
  - Wrist deformity [Unknown]
  - Carpal tunnel syndrome [Unknown]
  - Condition aggravated [Unknown]
  - Musculoskeletal chest pain [Unknown]
  - Arthropathy [Unknown]
  - Osteoarthritis [Unknown]
  - Infection [Unknown]
  - Arthritis bacterial [Unknown]
  - Subcutaneous abscess [Unknown]
  - Osteomyelitis [Unknown]
  - Abscess [Unknown]
  - Bone disorder [Unknown]
  - Drug ineffective [Unknown]

NARRATIVE: CASE EVENT DATE: 20220101
